FAERS Safety Report 4554301-7 (Version None)
Quarter: 2005Q1

REPORT INFORMATION
  Report Type: 
  Country: None (occurrence: None)
  Receive Date: 20050118
  Receipt Date: 20041230
  Transmission Date: 20050727
  Serious: Yes (Hospitalization)
  Sender: FDA-Public Use
  Company Number: FR-GLAXOSMITHKLINE-B0363158A

PATIENT
  Age: 60 Year
  Sex: Male
  Weight: 69 kg

DRUGS (6)
  1. CLAMOXYL [Suspect]
     Indication: TOOTH INFECTION
     Route: 048
     Dates: start: 20040729, end: 20040729
  2. LORAZEPAM [Concomitant]
     Indication: ANXIETY
     Dosage: 1MG PER DAY
     Route: 048
  3. IXEL [Concomitant]
     Dosage: 50MG PER DAY
     Route: 048
  4. BEDELIX [Concomitant]
     Indication: IRRITABLE BOWEL SYNDROME
     Dosage: 1SAC THREE TIMES PER DAY
     Route: 048
  5. METEOSPASMYL [Concomitant]
     Indication: IRRITABLE BOWEL SYNDROME
     Dosage: 2CAP THREE TIMES PER DAY
     Route: 048
  6. CARBOSYLANE [Concomitant]
     Indication: FLATULENCE
     Dosage: 1CAP TWICE PER DAY
     Route: 048

REACTIONS (3)
  - ANAPHYLACTOID SHOCK [None]
  - MALAISE [None]
  - TYPE III IMMUNE COMPLEX MEDIATED REACTION [None]
